FAERS Safety Report 4763447-X (Version None)
Quarter: 2005Q3

REPORT INFORMATION
  Report Type: 
  Country: None (occurrence: None)
  Receive Date: 20050908
  Receipt Date: 20050826
  Transmission Date: 20060218
  Serious: Yes (Hospitalization)
  Sender: FDA-Public Use
  Company Number: DE-AMGEN-UK148025

PATIENT
  Sex: Female

DRUGS (1)
  1. CINACALCET [Suspect]
     Indication: HYPERPARATHYROIDISM SECONDARY
     Route: 048
     Dates: start: 20050112, end: 20050409

REACTIONS (6)
  - BONE DISORDER [None]
  - BONE PAIN [None]
  - DIARRHOEA [None]
  - GASTRIC ULCER [None]
  - HYPERPARATHYROIDISM [None]
  - WEIGHT DECREASED [None]
